FAERS Safety Report 9471118 (Version 1)
Quarter: 2013Q3

REPORT INFORMATION
  Report Type: Spontaneous
  Country: US (occurrence: None)
  Receive Date: 20130816
  Receipt Date: 20130816
  Transmission Date: 20140515
  Serious: Yes (Other)
  Sender: FDA-Public Use
  Company Number: SYM-2013-07762

PATIENT
  Sex: Female

DRUGS (1)
  1. TAMBOCOR [Suspect]
     Indication: PRODUCT USED FOR UNKNOWN INDICATION

REACTIONS (7)
  - Drug ineffective [None]
  - Thyroid cancer [None]
  - Colon cancer [None]
  - Enteritis [None]
  - Breast cancer female [None]
  - Therapeutic response unexpected with drug substitution [None]
  - Parathyroid tumour benign [None]
